FAERS Safety Report 6846001-5 (Version None)
Quarter: 2010Q3

REPORT INFORMATION
  Report Type: 
  Country: None (occurrence: None)
  Receive Date: 20100715
  Receipt Date: 20070904
  Transmission Date: 20110219
  Serious: No
  Sender: FDA-Public Use
  Company Number: US-PFIZER INC-2007074274

PATIENT
  Sex: Female
  Weight: 109.1 kg

DRUGS (2)
  1. CHANTIX [Suspect]
     Indication: SMOKING CESSATION THERAPY
     Dates: start: 20070826
  2. VALSARTAN [Concomitant]

REACTIONS (2)
  - ERYTHEMA [None]
  - PRURITUS [None]
